FAERS Safety Report 10331975 (Version 3)
Quarter: 2015Q1

REPORT INFORMATION
  Report Type: Spontaneous
  Country: US (occurrence: US)
  Receive Date: 20140722
  Receipt Date: 20150119
  Transmission Date: 20150720
  Serious: No
  Sender: FDA-Public Use
  Company Number: US-UNITED THERAPEUTICS-UNT-2014-001211

PATIENT
  Age: 67 Year
  Sex: Female
  Weight: 88.89 kg

DRUGS (3)
  1. REMODULIN [Suspect]
     Active Substance: TREPROSTINIL
     Indication: COR PULMONALE CHRONIC
     Dosage: .018 ?G/KG/MIN, CONTINUING
     Route: 058
     Dates: start: 20140517
  2. REMODULIN [Suspect]
     Active Substance: TREPROSTINIL
     Dosage: 0.014 ?G/KG/MIN, UNK
     Route: 058
     Dates: start: 20140521
  3. REMODULIN [Suspect]
     Active Substance: TREPROSTINIL
     Dosage: 0.016 ?G/KG/MIN, UNK
     Route: 058
     Dates: start: 20140524

REACTIONS (7)
  - Headache [Unknown]
  - Diarrhoea [Unknown]
  - Limb discomfort [Unknown]
  - Nausea [Unknown]
  - Pain in jaw [Not Recovered/Not Resolved]
  - Flushing [Unknown]
  - Restless legs syndrome [Unknown]

NARRATIVE: CASE EVENT DATE: 201405
